FAERS Safety Report 5928046-2 (Version None)
Quarter: 2008Q4

REPORT INFORMATION
  Report Type: 
  Country: None (occurrence: None)
  Receive Date: 20081023
  Receipt Date: 20081020
  Transmission Date: 20090506
  Serious: Yes (Hospitalization)
  Sender: FDA-Public Use
  Company Number: A0752534A

PATIENT
  Age: 73 Year
  Sex: Male

DRUGS (8)
  1. ADVAIR DISKUS 100/50 [Suspect]
     Indication: ASTHMA
     Dosage: 1PUFF TWICE PER DAY
     Route: 055
     Dates: start: 20010101
  2. COUMADIN [Concomitant]
  3. COZAAR [Concomitant]
  4. CARDIZEM [Concomitant]
  5. ASPIRIN [Concomitant]
  6. FLUTICASONE PROPIONATE [Concomitant]
     Route: 045
  7. ASCORBIC ACID [Concomitant]
  8. CALTRATE [Concomitant]

REACTIONS (5)
  - ARTERIOGRAM [None]
  - ATRIAL FIBRILLATION [None]
  - NON-HODGKIN'S LYMPHOMA [None]
  - TONSILLAR CYST [None]
  - VOCAL CORD CYST [None]
